FAERS Safety Report 12590869 (Version 3)
Quarter: 2016Q3

REPORT INFORMATION
  Report Type: Spontaneous
  Country: JP (occurrence: JP)
  Receive Date: 20160726
  Receipt Date: 20160829
  Transmission Date: 20161109
  Serious: Yes (Death)
  Sender: FDA-Public Use
  Company Number: JP-ORION CORPORATION ORION PHARMA-ENTC2016-0402

PATIENT
  Age: 89 Year
  Sex: Female

DRUGS (6)
  1. STALEVO [Suspect]
     Active Substance: CARBIDOPA\ENTACAPONE\LEVODOPA
     Indication: PARKINSON^S DISEASE
     Dosage: STRENGTH: 100/10/100 MG
     Route: 048
     Dates: start: 201606
  2. EXELON [Suspect]
     Active Substance: RIVASTIGMINE TARTRATE
     Indication: DEMENTIA ALZHEIMER^S TYPE
     Dosage: PATCH 2.5 CM2, RIVASTIGMINE BASE 4.5 MG
     Route: 062
     Dates: start: 201412
  3. NEODOPASTON [Concomitant]
     Active Substance: CARBIDOPA\LEVODOPA
     Route: 065
     Dates: end: 201606
  4. EXELON [Suspect]
     Active Substance: RIVASTIGMINE TARTRATE
     Dosage: PATCH 5 CM2, CONTAIN 9 MG OF RIVASTIGMINE BASE
     Route: 062
  5. EXELON [Suspect]
     Active Substance: RIVASTIGMINE TARTRATE
     Dosage: PATCH 10 CM2, RIVASTIGMINE BASE 18 MG
     Route: 062
     Dates: start: 201503
  6. EXELON [Suspect]
     Active Substance: RIVASTIGMINE TARTRATE
     Dosage: PATCH 7.5 CM2, CONTAIN 13.5 MG OF RIVASTIGMINE BASE
     Route: 062

REACTIONS (2)
  - Blood pressure increased [Unknown]
  - Lacunar infarction [Fatal]

NARRATIVE: CASE EVENT DATE: 20160628
